FAERS Safety Report 15580550 (Version 4)
Quarter: 2021Q2

REPORT INFORMATION
  Report Type: Report from Study
  Country: CA (occurrence: CA)
  Receive Date: 20181102
  Receipt Date: 20210512
  Transmission Date: 20210716
  Serious: Yes (Hospitalization, Other)
  Sender: FDA-Public Use
  Company Number: CA-BRISTOL-MYERS SQUIBB COMPANY-BMS-2017-101678

PATIENT
  Age: 57 Year
  Sex: Female

DRUGS (5)
  1. ABATACEPT [Suspect]
     Active Substance: ABATACEPT
     Indication: RHEUMATOID ARTHRITIS
     Dosage: 125 MG, QWK
     Route: 058
     Dates: start: 20171030
  2. ESOMEPRAZOLE. [Concomitant]
     Active Substance: ESOMEPRAZOLE MAGNESIUM
     Indication: PRODUCT USED FOR UNKNOWN INDICATION
     Route: 065
  3. CYCLOBENZAPRINE. [Concomitant]
     Active Substance: CYCLOBENZAPRINE
     Indication: PRODUCT USED FOR UNKNOWN INDICATION
     Route: 065
  4. DESIPRAMINE [Concomitant]
     Active Substance: DESIPRAMINE
     Indication: PRODUCT USED FOR UNKNOWN INDICATION
     Route: 065
  5. SEROQUEL [Concomitant]
     Active Substance: QUETIAPINE FUMARATE
     Indication: PRODUCT USED FOR UNKNOWN INDICATION
     Route: 065

REACTIONS (27)
  - Contusion [Unknown]
  - Poor quality sleep [Unknown]
  - Scratch [Unknown]
  - Erythema [Recovered/Resolved]
  - Stress [Unknown]
  - Cerebral disorder [Unknown]
  - Malaise [Unknown]
  - Dyspnoea [Not Recovered/Not Resolved]
  - Fatigue [Unknown]
  - Muscular weakness [Unknown]
  - Wound [Unknown]
  - Swelling [Recovered/Resolved]
  - Joint injury [Unknown]
  - Fibromyalgia [Unknown]
  - Nausea [Unknown]
  - Productive cough [Not Recovered/Not Resolved]
  - Respiratory tract infection viral [Unknown]
  - Nodule [Unknown]
  - Rheumatoid arthritis [Recovered/Resolved]
  - Injection site pain [Recovered/Resolved]
  - Joint swelling [Unknown]
  - Hip deformity [Unknown]
  - Dizziness [Unknown]
  - Fall [Recovering/Resolving]
  - Back injury [Unknown]
  - Pain [Unknown]
  - Oedema peripheral [Recovering/Resolving]

NARRATIVE: CASE EVENT DATE: 20171107
